FAERS Safety Report 22177708 (Version 4)
Quarter: 2023Q2

REPORT INFORMATION
  Report Type: Spontaneous
  Country: GB (occurrence: GB)
  Receive Date: 20230405
  Receipt Date: 20230515
  Transmission Date: 20230722
  Serious: Yes (Hospitalization, Other)
  Sender: FDA-Public Use
  Company Number: None

PATIENT

DRUGS (50)
  1. ACETAMINOPHEN [Suspect]
     Active Substance: ACETAMINOPHEN
     Indication: Product used for unknown indication
     Dosage: 500 MG,QD (TT)
     Route: 048
  2. ESOMEPRAZOLE [Suspect]
     Active Substance: ESOMEPRAZOLE
     Indication: Gastritis
     Route: 065
  3. EPINEPHRINE BITARTRATE [Suspect]
     Active Substance: EPINEPHRINE BITARTRATE
     Indication: Deep vein thrombosis
     Dosage: 150MICROGRAMS/0.15ML (ADRENALINE 1 IN 1,000)
     Route: 065
     Dates: start: 2017, end: 2017
  4. ASPIRIN [Suspect]
     Active Substance: ASPIRIN
     Indication: Product used for unknown indication
     Dosage: MORNING
     Route: 048
     Dates: start: 2017, end: 2017
  5. CALCIUM\CHOLECALCIFEROL [Suspect]
     Active Substance: CALCIUM\CHOLECALCIFEROL
     Indication: Product used for unknown indication
     Dosage: COLECALCIFEROL 400UNIT / CALCIUM CARBONATE 1.5G(M,T)
     Route: 065
  6. CALCIUM\CHOLECALCIFEROL [Suspect]
     Active Substance: CALCIUM\CHOLECALCIFEROL
     Dosage: GRAM (COLECALCIFEROL 400UNIT / CALCIUM CARBONATE 1.5G(M,T))
  7. ESCITALOPRAM [Suspect]
     Active Substance: ESCITALOPRAM OXALATE
     Indication: Product used for unknown indication
     Dosage: 10 MG, QD
     Route: 048
     Dates: start: 202302
  8. ESCITALOPRAM [Suspect]
     Active Substance: ESCITALOPRAM OXALATE
     Dosage: 5 MG, QD
  9. FUROSEMIDE [Suspect]
     Active Substance: FUROSEMIDE
     Indication: Product used for unknown indication
     Dosage: MORNING
     Route: 048
  10. GABAPENTIN [Suspect]
     Active Substance: GABAPENTIN
     Indication: Product used for unknown indication
     Dosage: 300 MG, TDS (M,L,T)
     Route: 048
  11. LEVOTHYROXINE [Suspect]
     Active Substance: LEVOTHYROXINE
     Indication: Product used for unknown indication
     Dosage: MORNING
     Route: 048
  12. MEBEVERINE [Suspect]
     Active Substance: MEBEVERINE
     Indication: Product used for unknown indication
     Dosage: MR 200MG CAPS BD (M,T)
     Route: 048
     Dates: start: 2017, end: 2017
  13. MEBEVERINE [Suspect]
     Active Substance: MEBEVERINE
     Dosage: 400 MG, BID (M, T)
  14. METFORMIN [Suspect]
     Active Substance: METFORMIN HYDROCHLORIDE
     Indication: Product used for unknown indication
     Dosage: 1000 MG, BID (M, T)
     Route: 048
  15. METFORMIN [Suspect]
     Active Substance: METFORMIN HYDROCHLORIDE
     Dosage: 500MG TABS BD (M,T)
     Route: 048
  16. OMEPRAZOLE [Suspect]
     Active Substance: OMEPRAZOLE
     Indication: Product used for unknown indication
     Dosage: 40 MG, QD
     Route: 048
  17. OMEPRAZOLE [Suspect]
     Active Substance: OMEPRAZOLE
     Dosage: 80 MILLIGRAM DAILY; (M, T),
  18. OXYCODONE [Suspect]
     Active Substance: OXYCODONE
     Indication: Product used for unknown indication
     Dosage: 5MG MR TABS BD (M,N)
     Route: 048
  19. OXYCODONE [Suspect]
     Active Substance: OXYCODONE
     Dosage: 10 MG, BID (M,N)
  20. ROSUVASTATIN [Suspect]
     Active Substance: ROSUVASTATIN
     Indication: Product used for unknown indication
     Dosage: NIGHT
     Route: 048
  21. ALENDRONIC ACID [Suspect]
     Active Substance: ALENDRONIC ACID
     Dosage: SUNDAYS
     Route: 048
  22. INFLIXIMAB [Suspect]
     Active Substance: INFLIXIMAB
     Indication: Deep vein thrombosis
     Dosage: UNK
     Dates: start: 2017, end: 2017
  23. VAXZEVRIA [Suspect]
     Active Substance: AZD-1222
     Dosage: 0.5ML
     Dates: start: 20210315
  24. VAXZEVRIA [Suspect]
     Active Substance: AZD-1222
     Dosage: 0.5 ML
     Dates: start: 20210713
  25. VAXZEVRIA [Suspect]
     Active Substance: AZD-1222
     Dosage: 0.5ML
     Dates: start: 20210508
  26. VAXZEVRIA [Suspect]
     Active Substance: AZD-1222
     Dosage: 0.5ML
     Dates: start: 20210319
  27. VAXZEVRIA [Suspect]
     Active Substance: AZD-1222
     Dosage: 0.5ML
     Dates: start: 20210204
  28. VAXZEVRIA [Suspect]
     Active Substance: AZD-1222
     Dosage: UNK
     Dates: start: 2019
  29. VAXZEVRIA [Suspect]
     Active Substance: AZD-1222
     Dosage: 0.5ML
     Dates: start: 20210521
  30. PREDNISONE [Suspect]
     Active Substance: PREDNISONE
     Indication: Deep vein thrombosis
     Dosage: UNK
     Dates: start: 2017, end: 2017
  31. BUDESONIDE [Suspect]
     Active Substance: BUDESONIDE
     Indication: Colitis ulcerative
     Dosage: 1 DOSAGE FORM, QOD
     Dates: start: 201707
  32. WARFARIN [Suspect]
     Active Substance: WARFARIN
     Indication: Deep vein thrombosis
     Dosage: UNK
     Dates: start: 2017, end: 2017
  33. HYDROCORTISONE [Suspect]
     Active Substance: HYDROCORTISONE
     Indication: Product used for unknown indication
     Dosage: 8 DOSAGE FORM, Q8WK
  34. FELODIPINE [Suspect]
     Active Substance: FELODIPINE
     Indication: Hypertension
  35. HUMIRA [Suspect]
     Active Substance: ADALIMUMAB
     Indication: Deep vein thrombosis
     Dosage: UNK
     Dates: start: 2017, end: 2017
  36. POLYETHYLENE GLYCOL 3350\POTASSIUM CHLORIDE\SODIUM BICARBONATE\SODIUM [Concomitant]
     Active Substance: POLYETHYLENE GLYCOL 3350\POTASSIUM CHLORIDE\SODIUM BICARBONATE\SODIUM CHLORIDE
  37. ENTYVIO [Suspect]
     Active Substance: VEDOLIZUMAB
     Indication: Colitis ulcerative
     Dosage: UNK
     Route: 042
     Dates: start: 2017
  38. ACETAMINOPHEN [Suspect]
     Active Substance: ACETAMINOPHEN
     Indication: Product used for unknown indication
     Dosage: 2 GRAM, QID EFFERVESCENT TABLET
  39. ACETAMINOPHEN [Suspect]
     Active Substance: ACETAMINOPHEN
     Dosage: 500MG TABS TT QDS EFFERVESCENT TABLET
  40. DAPAGLIFLOZIN [Suspect]
     Active Substance: DAPAGLIFLOZIN
     Indication: Ill-defined disorder
     Dosage: UNK
     Dates: start: 20230425
  41. VEDOLIZUMAB [Suspect]
     Active Substance: VEDOLIZUMAB
     Indication: Deep vein thrombosis
     Dosage: UNK
     Dates: start: 2017, end: 2017
  42. CANDESARTAN [Suspect]
     Active Substance: CANDESARTAN
     Dosage: UNK
     Dates: start: 20230412
  43. SULFASALAZINE [Suspect]
     Active Substance: SULFASALAZINE
     Indication: Deep vein thrombosis
     Dosage: UNK
     Dates: start: 2017, end: 2017
  44. METHOTREXATE [Concomitant]
     Active Substance: METHOTREXATE
     Indication: Colitis ulcerative
  45. ALBENDAZOLE [Suspect]
     Active Substance: ALBENDAZOLE
     Indication: Deep vein thrombosis
     Dosage: UNK
     Dates: start: 2017, end: 2017
  46. XELJANZ [Concomitant]
     Active Substance: TOFACITINIB CITRATE
     Indication: Colitis ulcerative
  47. ASPIRIN [Suspect]
     Active Substance: ASPIRIN
     Dosage: 75 MG, QD
     Route: 048
  48. CORTIFOAM [Suspect]
     Active Substance: HYDROCORTISONE ACETATE
     Indication: Colitis ulcerative
     Dosage: 1 DOSAGE FORM
  49. RAMIPRIL [Concomitant]
     Active Substance: RAMIPRIL
     Indication: Ill-defined disorder
  50. ASACOL [Suspect]
     Active Substance: MESALAMINE
     Indication: Colitis ulcerative
     Dosage: 4.8 G, QD
     Dates: start: 20161001

REACTIONS (43)
  - Confusional state [Unknown]
  - Somnolence [Unknown]
  - Pyrexia [Unknown]
  - Palpitations [Not Recovered/Not Resolved]
  - Dysgeusia [Not Recovered/Not Resolved]
  - Swollen tongue [Recovered/Resolved]
  - Eczema [Recovered/Resolved]
  - Frequent bowel movements [Unknown]
  - Haematochezia [Unknown]
  - Abdominal discomfort [Not Recovered/Not Resolved]
  - COVID-19 [Not Recovered/Not Resolved]
  - Headache [Recovered/Resolved]
  - Burns second degree [Recovered/Resolved]
  - Impaired work ability [Unknown]
  - Loss of personal independence in daily activities [Unknown]
  - Weight decreased [Unknown]
  - Vertigo [Recovering/Resolving]
  - Cerebrovascular accident [Recovered/Resolved with Sequelae]
  - Deep vein thrombosis [Unknown]
  - Fatigue [Not Recovered/Not Resolved]
  - Parosmia [Not Recovered/Not Resolved]
  - Impaired quality of life [Unknown]
  - Steroid dependence [Unknown]
  - Tinnitus [Not Recovered/Not Resolved]
  - Catarrh [Not Recovered/Not Resolved]
  - Colitis ulcerative [Unknown]
  - Rhinitis [Not Recovered/Not Resolved]
  - Pain [Recovered/Resolved]
  - Depression [Recovered/Resolved]
  - Rash [Not Recovered/Not Resolved]
  - Bronchiectasis [Unknown]
  - Cardiac murmur [Recovering/Resolving]
  - Hypopnoea [Recovered/Resolved with Sequelae]
  - Migraine [Recovering/Resolving]
  - Stress [Not Recovered/Not Resolved]
  - Nightmare [Recovered/Resolved]
  - Arthritis [Not Recovered/Not Resolved]
  - Systemic lupus erythematosus [Recovered/Resolved with Sequelae]
  - Pulmonary embolism [Recovered/Resolved with Sequelae]
  - Gingival pain [Recovered/Resolved with Sequelae]
  - Pain in extremity [Recovered/Resolved]
  - Tubulointerstitial nephritis [Recovering/Resolving]
  - Rectal haemorrhage [Unknown]

NARRATIVE: CASE EVENT DATE: 20080101
